FAERS Safety Report 25202279 (Version 1)
Quarter: 2025Q2

REPORT INFORMATION
  Report Type: Spontaneous
  Country: GB (occurrence: GB)
  Receive Date: 20250416
  Receipt Date: 20250416
  Transmission Date: 20250717
  Serious: Yes (Other)
  Sender: CIPLA
  Company Number: GB-MHRA-MED-202504011319124980-QLKZT

PATIENT

DRUGS (2)
  1. RIVAROXABAN [Suspect]
     Active Substance: RIVAROXABAN
     Indication: Thrombophlebitis
     Dosage: 10 MILLIGRAM, QD (6 WEEKS) (TABLET)
     Route: 065
     Dates: start: 20250212, end: 20250308
  2. RIVAROXABAN [Suspect]
     Active Substance: RIVAROXABAN
     Route: 065
     Dates: start: 202503

REACTIONS (1)
  - Alopecia [Not Recovered/Not Resolved]

NARRATIVE: CASE EVENT DATE: 20250201
